FAERS Safety Report 6117922-6 (Version None)
Quarter: 2009Q1

REPORT INFORMATION
  Report Type: 
  Country: None (occurrence: None)
  Receive Date: 20090314
  Receipt Date: 20090129
  Transmission Date: 20090719
  Serious: No
  Sender: FDA-Public Use
  Company Number: US-ABBOTT-09P-163-0501365-00

PATIENT
  Sex: Female
  Weight: 81.72 kg

DRUGS (10)
  1. HUMIRA [Suspect]
     Indication: CROHN'S DISEASE
     Route: 058
     Dates: start: 20090115
  2. EFFEXOR [Concomitant]
     Indication: DEPRESSION
     Route: 048
  3. EFFEXOR [Concomitant]
     Indication: HOT FLUSH
  4. SYNTHROID [Concomitant]
     Indication: HYPOTHYROIDISM
     Route: 048
  5. HYDROCHLOROTHIAZIDE [Concomitant]
     Indication: HYPERTENSION
     Route: 048
  6. NEURONTIN [Concomitant]
     Indication: HOT FLUSH
     Route: 048
  7. NEURONTIN [Concomitant]
     Indication: PAIN
  8. TOPAMAX [Concomitant]
     Indication: MIGRAINE
     Route: 048
  9. OMEPRAZOLE [Concomitant]
     Indication: ULCER
     Route: 048
  10. OMEPRAZOLE [Concomitant]
     Indication: BARRETT'S OESOPHAGUS

REACTIONS (5)
  - CONTUSION [None]
  - ERYTHEMA [None]
  - INJECTION SITE URTICARIA [None]
  - PETECHIAE [None]
  - PRURITUS [None]
